FAERS Safety Report 24734468 (Version 1)
Quarter: 2024Q4

REPORT INFORMATION
  Report Type: Spontaneous
  Country: JP (occurrence: JP)
  Receive Date: 20241214
  Receipt Date: 20241214
  Transmission Date: 20250115
  Serious: Yes (Hospitalization)
  Sender: ALKEM
  Company Number: None

PATIENT
  Age: 13 Year
  Sex: Female
  Weight: 49.1 kg

DRUGS (27)
  1. MYCOPHENOLATE MOFETIL [Suspect]
     Active Substance: MYCOPHENOLATE MOFETIL
     Indication: Dermatomyositis
     Dosage: 500 MILLIGRAM, QD
     Route: 065
  2. MYCOPHENOLATE MOFETIL [Suspect]
     Active Substance: MYCOPHENOLATE MOFETIL
     Indication: Interstitial lung disease
     Dosage: 1500 MILLIGRAM, QD (INCREASED DOSE)
     Route: 065
  3. MYCOPHENOLATE MOFETIL [Suspect]
     Active Substance: MYCOPHENOLATE MOFETIL
     Dosage: 1000 MILLIGRAM, QD
     Route: 065
  4. TACROLIMUS [Suspect]
     Active Substance: TACROLIMUS
     Indication: Interstitial lung disease
     Dosage: 3 MILLIGRAM, QD
     Route: 065
  5. TACROLIMUS [Suspect]
     Active Substance: TACROLIMUS
     Indication: Dermatomyositis
     Dosage: 4 MILLIGRAM, QD
     Route: 065
  6. TACROLIMUS [Suspect]
     Active Substance: TACROLIMUS
     Dosage: 2 MILLIGRAM, QD
     Route: 065
  7. METHYLPREDNISOLONE [Suspect]
     Active Substance: METHYLPREDNISOLONE
     Indication: Interstitial lung disease
     Dosage: 1 GRAM, QD (CUMULATIVE DOSE 6 G TO FIRST REACTION) (BEGAN ON DAY 4)
     Route: 065
  8. METHYLPREDNISOLONE [Suspect]
     Active Substance: METHYLPREDNISOLONE
     Indication: Dermatomyositis
     Dosage: UNK (SECOND THERAPY) (PULSE THERAPY)
     Route: 065
  9. HUMAN IMMUNOGLOBULIN G [Suspect]
     Active Substance: HUMAN IMMUNOGLOBULIN G
     Indication: Interstitial lung disease
     Dosage: 400 MILLIGRAM, QD (ON DAY 15)
     Route: 042
  10. HUMAN IMMUNOGLOBULIN G [Suspect]
     Active Substance: HUMAN IMMUNOGLOBULIN G
     Indication: Dermatomyositis
  11. PREDNISOLONE [Suspect]
     Active Substance: PREDNISOLONE
     Indication: Interstitial lung disease
     Dosage: 1 MILLIGRAM, QD
     Route: 048
  12. PREDNISOLONE [Suspect]
     Active Substance: PREDNISOLONE
     Indication: Dermatomyositis
     Dosage: 35 MILLIGRAM, QD
     Route: 048
  13. PREDNISOLONE [Suspect]
     Active Substance: PREDNISOLONE
     Dosage: 2 MILLIGRAM, QD
     Route: 048
  14. PREDNISOLONE [Suspect]
     Active Substance: PREDNISOLONE
     Dosage: 8 MILLIGRAM, QD
     Route: 048
  15. PREDNISOLONE [Suspect]
     Active Substance: PREDNISOLONE
     Dosage: 60 MILLIGRAM, QD
     Route: 048
  16. PREDNISOLONE [Suspect]
     Active Substance: PREDNISOLONE
     Dosage: 40 MILLIGRAM, QD
     Route: 048
  17. PREDNISOLONE [Suspect]
     Active Substance: PREDNISOLONE
     Dosage: 3 MILLIGRAM, QD
     Route: 048
  18. PREDNISOLONE [Suspect]
     Active Substance: PREDNISOLONE
     Dosage: 14 MILLIGRAM, QD
     Route: 048
  19. PREDNISOLONE [Suspect]
     Active Substance: PREDNISOLONE
     Dosage: 50 MILLIGRAM, QD
     Route: 048
  20. PREDNISOLONE [Suspect]
     Active Substance: PREDNISOLONE
     Dosage: 5 MILLIGRAM, QD
     Route: 048
  21. PREDNISOLONE [Suspect]
     Active Substance: PREDNISOLONE
     Dosage: 45 MILLIGRAM, QD
     Route: 048
  22. PREDNISOLONE [Suspect]
     Active Substance: PREDNISOLONE
     Dosage: 55 MILLIGRAM, QD
     Route: 048
  23. PREDNISOLONE [Suspect]
     Active Substance: PREDNISOLONE
     Dosage: 30 MILLIGRAM, QD
     Route: 048
  24. PREDNISOLONE [Suspect]
     Active Substance: PREDNISOLONE
     Dosage: 11 MILLIGRAM, QD
     Route: 048
  25. PREDNISOLONE [Suspect]
     Active Substance: PREDNISOLONE
     Dosage: 25 MILLIGRAM, QD
     Route: 048
  26. PREDNISOLONE [Suspect]
     Active Substance: PREDNISOLONE
     Dosage: 17 MILLIGRAM, QD
     Route: 048
  27. PREDNISOLONE [Suspect]
     Active Substance: PREDNISOLONE
     Dosage: 5 MILLIGRAM PER TWO WEEKS
     Route: 065

REACTIONS (2)
  - COVID-19 [Unknown]
  - Herpes zoster [Unknown]
